FAERS Safety Report 13701317 (Version 1)
Quarter: 2017Q2

REPORT INFORMATION
  Report Type: Spontaneous
  Country: US (occurrence: US)
  Receive Date: 20170628
  Receipt Date: 20170628
  Transmission Date: 20170830
  Serious: No
  Sender: FDA-Public Use
  Company Number: None

PATIENT
  Age: 35 Year
  Sex: Female

DRUGS (8)
  1. OMEPRAZ [Concomitant]
  2. URSODIOL. [Concomitant]
     Active Substance: URSODIOL
  3. METAMUC [Concomitant]
  4. PROPANOL [Concomitant]
     Active Substance: PROPRANOLOL HYDROCHLORIDE
  5. MONTELUK [Concomitant]
  6. STL SOFT [Concomitant]
  7. OCALIVA [Suspect]
     Active Substance: OBETICHOLIC ACID
     Indication: BILIARY CIRRHOSIS PRIMARY
     Route: 048
     Dates: start: 20170411
  8. SPIRONOL [Concomitant]
     Active Substance: SPIRONOLACTONE

REACTIONS (1)
  - Rash [None]

NARRATIVE: CASE EVENT DATE: 20170411
